FAERS Safety Report 10007441 (Version 1)
Quarter: 2014Q1

REPORT INFORMATION
  Report Type: Spontaneous
  Country: US (occurrence: None)
  Receive Date: 20140312
  Receipt Date: 20140312
  Transmission Date: 20141002
  Serious: Yes (Hospitalization, Disabling)
  Sender: FDA-Public Use
  Company Number: None

PATIENT
  Age: 75 Year
  Sex: Male
  Weight: 85 kg

DRUGS (17)
  1. REVLIMID 5 MG [Suspect]
     Indication: PLASMA CELL MYELOMA
     Dosage: 1 TABLET 5 MG MON-FRI^ ORAL.
     Route: 048
  2. ACYCLOVIR (ZOVIRAX) [Concomitant]
  3. AMLODIPINE (NORVASC) [Concomitant]
  4. CALCIUM CARBONATE [Concomitant]
  5. ERGOCALCIFEROL (VITAMIN D) [Concomitant]
  6. FLUTICASONE (FLONASE) [Concomitant]
  7. GABAPENTIN (NEURONTIN) [Concomitant]
  8. INSULIN GLARGINE (LANTUS) [Concomitant]
  9. INSULIN LISPRO (HUMALOG) [Concomitant]
  10. LENALIDOMIDE (REVLIMID) [Concomitant]
  11. LORATADINE (CLARITIN) [Concomitant]
  12. MULTIPLE VITAMINS/MINERALS (CENTRUM) [Concomitant]
  13. OMEGA-3 FATTY ACIDS (FISH OIL) [Concomitant]
  14. OXYCODONE CR (OXYCONTIN) [Concomitant]
  15. OXYCODONE, IMMEDIATE RELEASE, (ROXICODONE) [Concomitant]
  16. QUETIAPINE (SEROQUEL) [Concomitant]
  17. RIVAROXABAN (XARELTO) [Concomitant]

REACTIONS (3)
  - Asthenia [None]
  - Mental status changes [None]
  - Cerebrovascular accident [None]
